FAERS Safety Report 22254861 (Version 1)
Quarter: 2023Q2

REPORT INFORMATION
  Report Type: Spontaneous
  Country: IL (occurrence: IL)
  Receive Date: 20230426
  Receipt Date: 20230426
  Transmission Date: 20230721
  Serious: Yes (Hospitalization)
  Sender: FDA-Public Use
  Company Number: IL-BAYER-2023A056116

PATIENT
  Age: 79 Year
  Sex: Female

DRUGS (2)
  1. VITRAKVI [Suspect]
     Active Substance: LAROTRECTINIB
     Indication: Neuroendocrine tumour
     Dosage: 75 MG, BID
     Dates: start: 202301
  2. VITRAKVI [Suspect]
     Active Substance: LAROTRECTINIB
     Indication: Neuroendocrine tumour
     Dosage: 50 UNK

REACTIONS (4)
  - Pleural effusion [None]
  - Hypertension [None]
  - Haemoglobin decreased [None]
  - Off label use [None]

NARRATIVE: CASE EVENT DATE: 20230310
